FAERS Safety Report 26070082 (Version 1)
Quarter: 2025Q4

REPORT INFORMATION
  Report Type: Spontaneous
  Country: US (occurrence: None)
  Receive Date: 20251120
  Receipt Date: 20251120
  Transmission Date: 20260118
  Serious: Yes (Life-Threatening)
  Sender: ALKERMES
  Company Number: US-ALKERMES INC.-ALK-2025-003076

PATIENT
  Sex: Male
  Weight: 75.737 kg

DRUGS (1)
  1. VIVITROL [Suspect]
     Active Substance: NALTREXONE
     Indication: Alcohol use
     Dosage: 380 MILLIGRAM, QMO

REACTIONS (4)
  - Overdose [Unknown]
  - Drug intolerance [Unknown]
  - Drug ineffective [Unknown]
  - Confusional state [Unknown]
